FAERS Safety Report 24290029 (Version 1)
Quarter: 2024Q3

REPORT INFORMATION
  Report Type: Spontaneous
  Country: ET (occurrence: ET)
  Receive Date: 20240906
  Receipt Date: 20240906
  Transmission Date: 20241017
  Serious: Yes (Other)
  Sender: NOVARTIS
  Company Number: ET-002147023-NVSC2024ET178824

PATIENT
  Sex: Female

DRUGS (1)
  1. GLIVEC [Suspect]
     Active Substance: IMATINIB MESYLATE
     Indication: Gastrointestinal stromal tumour
     Dosage: 400 MG (4 X 100MG)
     Route: 065

REACTIONS (5)
  - Metastases to gastrointestinal tract [Unknown]
  - Abdominal wall mass [Unknown]
  - Hepatic mass [Unknown]
  - Abdominal pain [Unknown]
  - Decreased appetite [Unknown]
